FAERS Safety Report 9991246 (Version 3)
Quarter: 2016Q4

REPORT INFORMATION
  Report Type: Spontaneous
  Country: US (occurrence: US)
  Receive Date: 20140310
  Receipt Date: 20161118
  Transmission Date: 20170207
  Serious: No
  Sender: FDA-Public Use
  Company Number: US-PFIZER INC-2014066624

PATIENT
  Age: 54 Year
  Sex: Female

DRUGS (1)
  1. DETROL LA [Suspect]
     Active Substance: TOLTERODINE TARTRATE
     Dosage: 4 MG, 1X/DAY

REACTIONS (3)
  - Urinary incontinence [Unknown]
  - Bradyphrenia [Unknown]
  - Hypoacusis [Unknown]
